FAERS Safety Report 17145418 (Version 9)
Quarter: 2021Q3

REPORT INFORMATION
  Report Type: Other
  Country: FR (occurrence: FR)
  Receive Date: 20191212
  Receipt Date: 20210719
  Transmission Date: 20211014
  Serious: Yes (Death, Hospitalization)
  Sender: FDA-Public Use
  Company Number: FR-ROCHE-2336581

PATIENT
  Age: 83 Year
  Sex: Male
  Weight: 81 kg

DRUGS (2)
  1. PREDNISOLONE. [Concomitant]
     Active Substance: PREDNISOLONE
     Indication: METASTASES TO CENTRAL NERVOUS SYSTEM
     Dates: start: 20180301
  2. ATEZOLIZUMAB. [Suspect]
     Active Substance: ATEZOLIZUMAB
     Indication: NON-SMALL CELL LUNG CANCER METASTATIC
     Dosage: DATE OF MOST RECENT DOSE OF ATEZOLIZUMAB PRIOR TO SAE ONSET: 10/MAY/2019
     Route: 042
     Dates: start: 20190510

REACTIONS (2)
  - Alanine aminotransferase increased [Not Recovered/Not Resolved]
  - Cell death [Not Recovered/Not Resolved]

NARRATIVE: CASE EVENT DATE: 20190522
